FAERS Safety Report 17803871 (Version 4)
Quarter: 2020Q2

REPORT INFORMATION
  Report Type: Spontaneous
  Country: PT (occurrence: PT)
  Receive Date: 20200519
  Receipt Date: 20200623
  Transmission Date: 20200714
  Serious: Yes (Other)
  Sender: FDA-Public Use
  Company Number: PT-PFIZER INC-2020196881

PATIENT
  Sex: Male

DRUGS (24)
  1. LORAZEPAM. [Suspect]
     Active Substance: LORAZEPAM
     Indication: TIC
     Dosage: 2 MG, 3X/DAY
  2. LORAZEPAM. [Suspect]
     Active Substance: LORAZEPAM
     Indication: INSOMNIA
  3. MIDAZOLAM. [Suspect]
     Active Substance: MIDAZOLAM
     Indication: COMPULSIVE LIP BITING
  4. TIAPRIDE [Suspect]
     Active Substance: TIAPRIDE
     Indication: TIC
     Dosage: 50 MG, 3X/DAY
  5. DIAZEPAM. [Suspect]
     Active Substance: DIAZEPAM
     Indication: INSOMNIA
  6. CLONIDINE. [Suspect]
     Active Substance: CLONIDINE
     Indication: COMPULSIVE LIP BITING
  7. CLONIDINE. [Suspect]
     Active Substance: CLONIDINE
     Indication: INSOMNIA
  8. TETRABENAZINE. [Suspect]
     Active Substance: TETRABENAZINE
     Indication: TIC
     Dosage: 37.5 MG
  9. SERTRALINE HCL [Suspect]
     Active Substance: SERTRALINE HYDROCHLORIDE
     Indication: COMPULSIVE LIP BITING
  10. SERTRALINE HCL [Suspect]
     Active Substance: SERTRALINE HYDROCHLORIDE
     Indication: INSOMNIA
  11. MIDAZOLAM. [Suspect]
     Active Substance: MIDAZOLAM
     Indication: TIC
     Dosage: UNK (BOLUSES)
     Route: 040
  12. ARIPIPRAZOLE. [Suspect]
     Active Substance: ARIPIPRAZOLE
     Indication: INSOMNIA
  13. CLONIDINE. [Suspect]
     Active Substance: CLONIDINE
     Indication: TIC
     Dosage: 112.5 UG, 3X/DAY
  14. ARIPIPRAZOLE. [Suspect]
     Active Substance: ARIPIPRAZOLE
     Indication: COMPULSIVE LIP BITING
  15. MIDAZOLAM. [Suspect]
     Active Substance: MIDAZOLAM
     Indication: INSOMNIA
  16. TETRABENAZINE. [Suspect]
     Active Substance: TETRABENAZINE
     Indication: COMPULSIVE LIP BITING
     Dosage: 25 MG
  17. TIAPRIDE [Suspect]
     Active Substance: TIAPRIDE
     Indication: INSOMNIA
  18. DIAZEPAM. [Suspect]
     Active Substance: DIAZEPAM
     Indication: COMPULSIVE LIP BITING
  19. TETRABENAZINE. [Suspect]
     Active Substance: TETRABENAZINE
     Indication: INSOMNIA
     Dosage: 37.5 MG
  20. LORAZEPAM. [Suspect]
     Active Substance: LORAZEPAM
     Indication: COMPULSIVE LIP BITING
  21. SERTRALINE HCL [Suspect]
     Active Substance: SERTRALINE HYDROCHLORIDE
     Indication: TIC
     Dosage: 50 MG, 1X/DAY
  22. DIAZEPAM. [Suspect]
     Active Substance: DIAZEPAM
     Indication: TIC
     Dosage: 5 MG, 2X/DAY
  23. ARIPIPRAZOLE. [Suspect]
     Active Substance: ARIPIPRAZOLE
     Indication: TIC
     Dosage: 1 MG, 1X/DAY
  24. TIAPRIDE [Suspect]
     Active Substance: TIAPRIDE
     Indication: COMPULSIVE LIP BITING

REACTIONS (3)
  - Catatonia [Recovering/Resolving]
  - Neuroleptic malignant syndrome [Recovering/Resolving]
  - Parkinsonism [Recovering/Resolving]
